FAERS Safety Report 24277823 (Version 1)
Quarter: 2024Q3

REPORT INFORMATION
  Report Type: Report from Study
  Country: CA (occurrence: CA)
  Receive Date: 20240903
  Receipt Date: 20240903
  Transmission Date: 20241016
  Serious: Yes (Other)
  Sender: DR REDDYS
  Company Number: CA-DRL-USA-CLI/CAN/24/0012627

PATIENT
  Age: 69 Year
  Sex: Female

DRUGS (1)
  1. ZOLEDRONIC ACID [Suspect]
     Active Substance: ZOLEDRONIC ACID
     Indication: Osteoporosis
     Dosage: 5MG/100 ML. (YEARLY).
     Route: 065
     Dates: start: 20210805

REACTIONS (1)
  - Breast cancer [Unknown]
